FAERS Safety Report 8169515-7 (Version None)
Quarter: 2012Q1

REPORT INFORMATION
  Report Type: 
  Country: None (occurrence: None)
  Receive Date: 20120228
  Receipt Date: 20120214
  Transmission Date: 20120608
  Serious: Yes (Other)
  Sender: FDA-Public Use
  Company Number: NO-UCBSA-052103

PATIENT
  Age: 44 Year
  Sex: Female

DRUGS (2)
  1. CIMZIA [Suspect]
     Dosage: UNKNOWN DOSE
     Route: 058
     Dates: start: 20100823, end: 20101118
  2. METHOTREXATE [Concomitant]

REACTIONS (4)
  - ABSCESS LIMB [None]
  - GROIN ABSCESS [None]
  - FATIGUE [None]
  - PSORIASIS [None]
